FAERS Safety Report 13024975 (Version 1)
Quarter: 2016Q4

REPORT INFORMATION
  Report Type: Spontaneous
  Country: US (occurrence: US)
  Receive Date: 20161213
  Receipt Date: 20161213
  Transmission Date: 20170207
  Serious: Yes (Hospitalization)
  Sender: FDA-Public Use
  Company Number: US-TAIHO ONCOLOGY INC-EU-2016-03167

PATIENT
  Age: 61 Year
  Sex: Male

DRUGS (6)
  1. ACETYLSALICYLIC ACID [Concomitant]
     Active Substance: ASPIRIN
  2. CRESTOR [Concomitant]
     Active Substance: ROSUVASTATIN CALCIUM
  3. ATROPINE SULFATE/DIPHENOXYLATE HYDROCHLORIDE [Concomitant]
  4. LONSURF [Suspect]
     Active Substance: TIPIRACIL HYDROCHLORIDE\TRIFLURIDINE
     Indication: COLORECTAL CANCER
     Route: 048
     Dates: start: 20160715
  5. BYSTOLIC [Concomitant]
     Active Substance: NEBIVOLOL HYDROCHLORIDE
  6. LANTUS [Concomitant]
     Active Substance: INSULIN GLARGINE

REACTIONS (2)
  - Malaise [Unknown]
  - Infection [Unknown]

NARRATIVE: CASE EVENT DATE: 201611
